FAERS Safety Report 19450052 (Version 1)
Quarter: 2021Q2

REPORT INFORMATION
  Report Type: Spontaneous
  Country: US (occurrence: US)
  Receive Date: 20210622
  Receipt Date: 20210622
  Transmission Date: 20210717
  Serious: No
  Sender: FDA-Public Use
  Company Number: US-XTTRIUM LABORATORIES, INC-2112988

PATIENT
  Sex: Female

DRUGS (1)
  1. CHLORHEXIDINE GLUCONATE. [Suspect]
     Active Substance: CHLORHEXIDINE GLUCONATE
     Route: 048
     Dates: start: 20210504, end: 20210504

REACTIONS (3)
  - Heart rate increased [Recovered/Resolved]
  - Tongue discolouration [Recovering/Resolving]
  - Throat tightness [Recovered/Resolved]

NARRATIVE: CASE EVENT DATE: 20210504
